FAERS Safety Report 4620405-3 (Version None)
Quarter: 2005Q1

REPORT INFORMATION
  Report Type: 
  Country: None (occurrence: None)
  Receive Date: 20050328
  Receipt Date: 20041207
  Transmission Date: 20050727
  Serious: Yes (Death)
  Sender: FDA-Public Use
  Company Number: IT-MERCK-0412ITA00008

PATIENT
  Age: 88 Year
  Sex: Male

DRUGS (6)
  1. VIOXX [Suspect]
     Indication: OSTEOARTHRITIS
     Route: 048
     Dates: start: 20030901, end: 20040901
  2. FUROSEMIDE [Concomitant]
     Route: 048
  3. SALMETEROL [Concomitant]
     Route: 065
  4. METHYLPREDNISOLONE [Concomitant]
     Route: 048
  5. RUTIN [Concomitant]
     Route: 065
  6. MELILOT [Concomitant]
     Route: 065

REACTIONS (1)
  - CARDIAC ARREST [None]
